FAERS Safety Report 17489727 (Version 1)
Quarter: 2020Q1

REPORT INFORMATION
  Report Type: Spontaneous
  Country: CA (occurrence: CA)
  Receive Date: 20200303
  Receipt Date: 20200303
  Transmission Date: 20200409
  Serious: Yes (Other)
  Sender: FDA-Public Use
  Company Number: CA-TEVA-2020-CA-1191346

PATIENT
  Age: 43 Year
  Sex: Female

DRUGS (3)
  1. LAMOTRIGINE. [Suspect]
     Active Substance: LAMOTRIGINE
     Indication: PRODUCT USED FOR UNKNOWN INDICATION
     Dosage: 25 MILLIGRAM DAILY;
     Route: 048
  2. LAMOTRIGINE. [Suspect]
     Active Substance: LAMOTRIGINE
     Dosage: 50 MILLIGRAM DAILY;
     Route: 048
  3. LAMOTRIGINE. [Suspect]
     Active Substance: LAMOTRIGINE
     Dosage: 100 MILLIGRAM DAILY;
     Route: 048

REACTIONS (14)
  - Arthralgia [Unknown]
  - Rash [Unknown]
  - Abdominal pain upper [Unknown]
  - Erythema [Unknown]
  - Back disorder [Unknown]
  - Rash macular [Unknown]
  - Diarrhoea [Unknown]
  - Burning sensation [Unknown]
  - Heart rate increased [Unknown]
  - Neck pain [Unknown]
  - Confusional state [Unknown]
  - Gastrointestinal infection [Unknown]
  - Pyrexia [Unknown]
  - Coordination abnormal [Unknown]
